FAERS Safety Report 5187763-5 (Version None)
Quarter: 2006Q4

REPORT INFORMATION
  Report Type: 
  Country: None (occurrence: None)
  Receive Date: 20061214
  Receipt Date: 20061202
  Transmission Date: 20070319
  Serious: Yes (Death, Hospitalization, Other)
  Sender: FDA-Public Use
  Company Number: 8020350

PATIENT
  Age: 70 Year
  Sex: Male

DRUGS (7)
  1. KEPPRA [Suspect]
     Indication: CONVULSION
     Dosage: 250 MG 2/D PO
     Route: 048
     Dates: start: 20060711, end: 20060901
  2. KEPPRA [Suspect]
     Indication: CONVULSION
     Dosage: 750 MG 2/D PO
     Route: 048
     Dates: start: 20060901, end: 20060901
  3. NEURONTIN [Concomitant]
  4. DILANTIN [Concomitant]
  5. COUMADIN [Concomitant]
  6. ................. [Concomitant]
  7. LOVENOX [Concomitant]

REACTIONS (16)
  - BLISTER [None]
  - BONE MARROW FAILURE [None]
  - CONFUSIONAL STATE [None]
  - DYSPNOEA [None]
  - ELECTROLYTE IMBALANCE [None]
  - HALLUCINATION [None]
  - HEART RATE INCREASED [None]
  - HYPOTENSION [None]
  - LOCALISED INFECTION [None]
  - MOOD SWINGS [None]
  - MYELODYSPLASTIC SYNDROME [None]
  - OEDEMA PERIPHERAL [None]
  - SEPSIS [None]
  - SKIN ULCER [None]
  - SOMNOLENCE [None]
  - THROMBOSIS [None]
